FAERS Safety Report 23692748 (Version 6)
Quarter: 2025Q3

REPORT INFORMATION
  Report Type: Report from Study
  Country: CA (occurrence: CA)
  Receive Date: 20240401
  Receipt Date: 20250709
  Transmission Date: 20251020
  Serious: Yes (Other)
  Sender: TAKEDA
  Company Number: CA-TAKEDA-2023TUS118572

PATIENT
  Age: 71 Year
  Sex: Female

DRUGS (13)
  1. VEDOLIZUMAB [Suspect]
     Active Substance: VEDOLIZUMAB
     Indication: Crohn^s disease
  2. VEDOLIZUMAB [Suspect]
     Active Substance: VEDOLIZUMAB
  3. VEDOLIZUMAB [Suspect]
     Active Substance: VEDOLIZUMAB
  4. ENTOCORT [Concomitant]
     Active Substance: BUDESONIDE
  5. PENTASA [Concomitant]
     Active Substance: MESALAMINE
  6. ATORVASTATIN [Concomitant]
     Active Substance: ATORVASTATIN
  7. ASPIRIN [Concomitant]
     Active Substance: ASPIRIN
  8. CELECOXIB [Concomitant]
     Active Substance: CELECOXIB
  9. VITAMIN D [Concomitant]
     Active Substance: VITAMIN D NOS
  10. TELMISARTAN [Concomitant]
     Active Substance: TELMISARTAN
  11. OMEPRAZOLE [Concomitant]
     Active Substance: OMEPRAZOLE
  12. TYLENOL [Concomitant]
     Active Substance: ACETAMINOPHEN
  13. IMODIUM [Concomitant]
     Active Substance: LOPERAMIDE HYDROCHLORIDE

REACTIONS (8)
  - Anorectal polyp [Not Recovered/Not Resolved]
  - Lower respiratory tract infection [Not Recovered/Not Resolved]
  - Fall [Recovering/Resolving]
  - Foot fracture [Recovering/Resolving]
  - Vitamin D decreased [Unknown]
  - Ear pain [Unknown]
  - Malaise [Unknown]
  - Cough [Recovered/Resolved]

NARRATIVE: CASE EVENT DATE: 20231031
